FAERS Safety Report 7523446-1 (Version None)
Quarter: 2011Q2

REPORT INFORMATION
  Report Type: 
  Country: None (occurrence: None)
  Receive Date: 20110603
  Receipt Date: 20101228
  Transmission Date: 20111010
  Serious: Yes (Hospitalization)
  Sender: FDA-Public Use
  Company Number: US-BAYER-201033877NA

PATIENT
  Age: 38 Year
  Sex: Female
  Weight: 126.98 kg

DRUGS (23)
  1. NEORAL [Concomitant]
  2. NEURONTIN [Concomitant]
     Indication: DEPRESSION
  3. LOVAZA [Concomitant]
  4. LIPITOR [Concomitant]
  5. YASMIN [Suspect]
     Indication: PRODUCT USED FOR UNKNOWN INDICATION
     Route: 048
  6. DROSPIRENONE AND ETHINYL ESTRADIOL [Suspect]
     Indication: PRODUCT USED FOR UNKNOWN INDICATION
     Route: 048
  7. TRAZODONE HCL [Concomitant]
  8. VALTREX [Concomitant]
  9. TENORMIN [Concomitant]
  10. LEXAPRO [Concomitant]
     Indication: DEPRESSION
  11. CYMBALTA [Concomitant]
     Indication: DEPRESSION
  12. CLONIDINE [Concomitant]
  13. BACTRIM DS [Concomitant]
  14. CALCIUM CARBONATE [Concomitant]
  15. YAZ [Suspect]
     Indication: PRODUCT USED FOR UNKNOWN INDICATION
     Route: 048
  16. CELLCEPT [Concomitant]
  17. XANAX [Concomitant]
  18. LASIX [Concomitant]
  19. KLOR-CON [Concomitant]
  20. FLONASE [Concomitant]
  21. VITAMIN D [Concomitant]
  22. ACTOS [Concomitant]
  23. SYNTHROID [Concomitant]

REACTIONS (5)
  - PAIN [None]
  - DEEP VEIN THROMBOSIS [None]
  - PULMONARY EMBOLISM [None]
  - DEPRESSION [None]
  - ANXIETY [None]
